FAERS Safety Report 9651916 (Version 1)
Quarter: 2013Q4

REPORT INFORMATION
  Report Type: Spontaneous
  Country: US (occurrence: US)
  Receive Date: 20131029
  Receipt Date: 20131029
  Transmission Date: 20140711
  Serious: No
  Sender: FDA-Public Use
  Company Number: US-ENDO PHARMACEUTICALS INC.-LACT20130006

PATIENT
  Sex: Female
  Weight: 122.58 kg

DRUGS (2)
  1. LACTULOSE ORAL SOLUTION [Suspect]
     Indication: PRODUCT USED FOR UNKNOWN INDICATION
     Route: 048
     Dates: start: 2013
  2. LACTULOSE [Concomitant]
     Indication: PRODUCT USED FOR UNKNOWN INDICATION
     Dosage: 10G/15 ML
     Route: 048
     Dates: end: 2013

REACTIONS (1)
  - Vomiting [Not Recovered/Not Resolved]
